FAERS Safety Report 21499556 (Version 1)
Quarter: 2022Q4

REPORT INFORMATION
  Report Type: Spontaneous
  Country: US (occurrence: None)
  Receive Date: 20221024
  Receipt Date: 20221024
  Transmission Date: 20230112
  Serious: Yes (Other)
  Sender: FDA-Public Use
  Company Number: None

PATIENT
  Age: 4 Month
  Sex: Male

DRUGS (1)
  1. MULTIHANCE [Suspect]
     Active Substance: GADOBENATE DIMEGLUMINE
     Dates: start: 20220928

REACTIONS (4)
  - Arthralgia [None]
  - Pain of skin [None]
  - Blood glucose increased [None]
  - Feeling abnormal [None]

NARRATIVE: CASE EVENT DATE: 20220928
